FAERS Safety Report 7740305-X (Version None)
Quarter: 2011Q3

REPORT INFORMATION
  Report Type: 
  Country: None (occurrence: None)
  Receive Date: 20110909
  Receipt Date: 20110907
  Transmission Date: 20111222
  Serious: Yes (Life-Threatening, Hospitalization)
  Sender: FDA-Public Use
  Company Number: US-ROCHE-801011

PATIENT
  Sex: Male

DRUGS (10)
  1. KEFLEX [Concomitant]
     Indication: CELLULITIS
     Route: 048
     Dates: start: 20110706, end: 20110716
  2. VICODIN ES [Concomitant]
  3. COMPAZINE [Concomitant]
  4. HEPARIN [Concomitant]
  5. BLINDED ACH-0141625 (HCV NS3/4A INHIBITOR) [Suspect]
     Indication: HEPATITIS C
     Route: 048
     Dates: start: 20110207, end: 20110306
  6. RIBAVIRIN [Suspect]
     Indication: HEPATITIS C
     Dosage: DOSE: 200 MG QAM AND 400 MG QHS
     Route: 048
     Dates: start: 20110207, end: 20110803
  7. PEGINTERFERON ALFA-2A [Suspect]
     Indication: HEPATITIS C
     Route: 058
     Dates: start: 20110207, end: 20110801
  8. HYDROCHLOROTHIAZIDE [Concomitant]
     Indication: HYPERTENSION
     Route: 050
     Dates: start: 20110418
  9. MORPHINE [Concomitant]
  10. IBUPROFEN [Concomitant]
     Indication: PAIN
     Dosage: AS NECESSSARY
     Route: 048
     Dates: start: 20110207

REACTIONS (2)
  - DEEP VEIN THROMBOSIS [None]
  - PULMONARY EMBOLISM [None]
